FAERS Safety Report 23191062 (Version 1)
Quarter: 2023Q4

REPORT INFORMATION
  Report Type: Spontaneous
  Country: JP (occurrence: JP)
  Receive Date: 20231116
  Receipt Date: 20231116
  Transmission Date: 20240110
  Serious: Yes (Other)
  Sender: FDA-Public Use
  Company Number: JP-NEBO-PC012570

PATIENT
  Age: 35 Year
  Sex: Female

DRUGS (1)
  1. FERRIC DERISOMALTOSE [Suspect]
     Active Substance: FERRIC DERISOMALTOSE
     Indication: Iron deficiency anaemia
     Route: 050
     Dates: start: 20230920, end: 20230920

REACTIONS (6)
  - Maternal exposure during pregnancy [Recovered/Resolved]
  - Nausea [Unknown]
  - Premature labour [Unknown]
  - Placenta accreta [Unknown]
  - Hysterectomy [Unknown]
  - Sepsis [Unknown]

NARRATIVE: CASE EVENT DATE: 20230101
